FAERS Safety Report 23980522 (Version 1)
Quarter: 2024Q2

REPORT INFORMATION
  Report Type: Spontaneous
  Country: DE (occurrence: DE)
  Receive Date: 20240617
  Receipt Date: 20240617
  Transmission Date: 20240716
  Serious: No
  Sender: FDA-Public Use
  Company Number: DE-ALKEM LABORATORIES LIMITED-DE-ALKEM-2024-09063

PATIENT
  Sex: Male

DRUGS (2)
  1. LEVETIRACETAM [Suspect]
     Active Substance: LEVETIRACETAM
     Indication: Meningioma
     Dosage: UNK
     Route: 065
  2. LACOSAMIDE [Suspect]
     Active Substance: LACOSAMIDE
     Indication: Meningioma
     Dosage: 400 MILLIGRAM, QD
     Route: 065

REACTIONS (5)
  - Muscle strain [Unknown]
  - Aggression [Unknown]
  - Coordination abnormal [Unknown]
  - Memory impairment [Unknown]
  - Skin disorder [Unknown]
